FAERS Safety Report 4988166-6 (Version None)
Quarter: 2006Q2

REPORT INFORMATION
  Report Type: 
  Country: None (occurrence: None)
  Receive Date: 20060425
  Receipt Date: 20060411
  Transmission Date: 20061013
  Serious: Yes (Hospitalization, Other)
  Sender: FDA-Public Use
  Company Number: 2006051243

PATIENT
  Age: 68 Year
  Sex: Male

DRUGS (1)
  1. LIPITOR [Suspect]
     Indication: ILL-DEFINED DISORDER
     Dosage: (1 IN 1 D), ORAL
     Route: 048
     Dates: start: 19990201

REACTIONS (16)
  - BONE DISORDER [None]
  - CONSTIPATION [None]
  - CORONARY ARTERY DISEASE [None]
  - CORONARY ARTERY STENOSIS [None]
  - DIARRHOEA [None]
  - DIZZINESS [None]
  - EMPYEMA [None]
  - FATIGUE [None]
  - HERNIA [None]
  - LUMBAR VERTEBRAL FRACTURE [None]
  - NAUSEA [None]
  - OSTEOPOROSIS [None]
  - PLEURAL INFECTION [None]
  - POLYMYALGIA RHEUMATICA [None]
  - SALMONELLOSIS [None]
  - VISUAL ACUITY REDUCED [None]
